FAERS Safety Report 12920310 (Version 1)
Quarter: 2016Q4

REPORT INFORMATION
  Report Type: Spontaneous
  Country: US (occurrence: US)
  Receive Date: 20161105
  Receipt Date: 20161105
  Transmission Date: 20170207
  Serious: Yes (Other)
  Sender: FDA-Public Use
  Company Number: None

PATIENT
  Age: 39 Year
  Sex: Female
  Weight: 63 kg

DRUGS (6)
  1. BUPROPION. [Suspect]
     Active Substance: BUPROPION
     Indication: ANXIETY
     Dosage: QUANTITY:1 TABLET(S); AT BEDTIME; ORAL?
     Route: 048
     Dates: start: 20151001, end: 20161001
  2. CITOLOPRAM [Concomitant]
  3. BUPROPION. [Suspect]
     Active Substance: BUPROPION
     Indication: DEPRESSION
     Dosage: QUANTITY:1 TABLET(S); AT BEDTIME; ORAL?
     Route: 048
     Dates: start: 20151001, end: 20161001
  4. PROBIOTICS [Concomitant]
     Active Substance: PROBIOTICS NOS
  5. HAIR/SKIN/NAILS VITAMINS [Concomitant]
  6. AMBIEN [Concomitant]
     Active Substance: ZOLPIDEM TARTRATE

REACTIONS (2)
  - Alopecia [None]
  - Depression [None]

NARRATIVE: CASE EVENT DATE: 20160901
